FAERS Safety Report 24818334 (Version 1)
Quarter: 2025Q1

REPORT INFORMATION
  Report Type: Spontaneous
  Country: US (occurrence: US)
  Receive Date: 20250108
  Receipt Date: 20250108
  Transmission Date: 20250409
  Serious: Yes (Other)
  Sender: DR REDDYS
  Company Number: US-DRL-USA-USA/2025/01/000254

PATIENT
  Age: 17 Month
  Sex: Male

DRUGS (4)
  1. TACROLIMUS [Suspect]
     Active Substance: TACROLIMUS
     Indication: Immunosuppressant drug therapy
  2. METHYLPREDNISOLONE [Concomitant]
     Active Substance: METHYLPREDNISOLONE
     Indication: Immunosuppressant drug therapy
  3. MYCOPHENOLATE MOFETIL [Concomitant]
     Active Substance: MYCOPHENOLATE MOFETIL
     Indication: Immunosuppressant drug therapy
  4. INFLIXIMAB [Concomitant]
     Active Substance: INFLIXIMAB
     Indication: Immunosuppressant drug therapy

REACTIONS (1)
  - Drug ineffective [Unknown]
